FAERS Safety Report 15397672 (Version 3)
Quarter: 2018Q4

REPORT INFORMATION
  Report Type: Report from Study
  Country: None (occurrence: US)
  Receive Date: 20180918
  Receipt Date: 20181005
  Transmission Date: 20190204
  Serious: Yes (Hospitalization)
  Sender: FDA-Public Use
  Company Number: US-ABBVIE-18K-163-2484797-00

PATIENT
  Sex: Male
  Weight: 65.83 kg

DRUGS (3)
  1. HUMIRA [Suspect]
     Active Substance: ADALIMUMAB
     Indication: CROHN^S DISEASE
     Route: 058
     Dates: start: 2010
  2. HUMIRA [Suspect]
     Active Substance: ADALIMUMAB
     Indication: CROHN^S DISEASE
     Route: 058
  3. PREDNISONE. [Concomitant]
     Active Substance: PREDNISONE
     Indication: PRODUCT USED FOR UNKNOWN INDICATION

REACTIONS (10)
  - Asthenia [Not Recovered/Not Resolved]
  - Dehydration [Unknown]
  - Intestinal obstruction [Not Recovered/Not Resolved]
  - Abdominal pain upper [Not Recovered/Not Resolved]
  - Hypophagia [Unknown]
  - Crohn^s disease [Unknown]
  - Injection site papule [Unknown]
  - Vomiting [Unknown]
  - Injection site pain [Unknown]
  - Fatigue [Unknown]

NARRATIVE: CASE EVENT DATE: 201808
